FAERS Safety Report 4526787-5 (Version None)
Quarter: 2004Q4

REPORT INFORMATION
  Report Type: 
  Country: None (occurrence: None)
  Receive Date: 20041213
  Receipt Date: 20041202
  Transmission Date: 20050328
  Serious: No
  Sender: FDA-Public Use
  Company Number: 2004UW24789

PATIENT

DRUGS (1)
  1. SENSORCAINE [Suspect]
     Indication: ANAESTHESIA
     Dates: start: 20041201, end: 20041201

REACTIONS (5)
  - ANAESTHETIC COMPLICATION [None]
  - DRUG TOXICITY [None]
  - MEDICATION ERROR [None]
  - MIGRATION OF IMPLANT [None]
  - PARAPLEGIA [None]
